FAERS Safety Report 7506181-5 (Version None)
Quarter: 2011Q2

REPORT INFORMATION
  Report Type: 
  Country: None (occurrence: None)
  Receive Date: 20110526
  Receipt Date: 20110516
  Transmission Date: 20111010
  Serious: Yes (Death)
  Sender: FDA-Public Use
  Company Number: US-MYLANLABS-2011S1010108

PATIENT
  Age: 40 Year
  Sex: Male

DRUGS (17)
  1. FENTANYL-100 [Suspect]
     Indication: PAIN IN EXTREMITY
     Dosage: Q3D
     Route: 062
     Dates: start: 20110207, end: 20110208
  2. CARBAMAZEPINE [Concomitant]
  3. FENTANYL-100 [Suspect]
     Dosage: Q3D
     Route: 048
     Dates: start: 20110207, end: 20110208
  4. MARIJUANA [Suspect]
  5. MIRTAZAPINE [Concomitant]
  6. PROPRANOLOL [Concomitant]
  7. PHENYTOIN [Concomitant]
  8. HYDROMORPHONE HCL [Concomitant]
     Dosage: 2MG EVERY FOUR HOURS AS NEEDED. USUALLY ONLY TWO A DAY.
     Route: 048
  9. SPIRONOLACTONE [Concomitant]
  10. LYRICA [Concomitant]
  11. HUMALOG [Concomitant]
  12. LEVETIRACETAM [Concomitant]
  13. FUROSEMIDE [Concomitant]
  14. PRAZOSIN HCL [Concomitant]
  15. SEROQUEL [Concomitant]
  16. EFFEXOR XR [Concomitant]
  17. METOPROLOL SUCCINATE [Concomitant]

REACTIONS (2)
  - INTENTIONAL DRUG MISUSE [None]
  - ACCIDENTAL DEATH [None]
